FAERS Safety Report 4490416-X (Version None)
Quarter: 2004Q4

REPORT INFORMATION
  Report Type: 
  Country: None (occurrence: None)
  Receive Date: 20041028
  Receipt Date: 20041018
  Transmission Date: 20050328
  Serious: Yes (Death)
  Sender: FDA-Public Use
  Company Number: STA-AE-04-034

PATIENT
  Age: 73 Year
  Sex: Female

DRUGS (11)
  1. DILTIAZEM [Suspect]
     Dosage: 120 MG TWICE DAILY
  2. SIMVASTATIN [Suspect]
     Dosage: 40 MG DAILY
  3. ASPIRIN [Concomitant]
  4. ISOSRBIDE MONONITRATE [Concomitant]
  5. CILAZAPRIL [Concomitant]
  6. METOPROLOL SUCCINATE [Concomitant]
  7. FUROSEMIDE [Concomitant]
  8. METFORMIN [Concomitant]
  9. OMEPRAZOLE [Concomitant]
  10. INSULIN [Concomitant]
  11. AMITRIPTYLINE HCL [Concomitant]

REACTIONS (6)
  - ARTHRALGIA [None]
  - ASTHENIA [None]
  - DRUG INTERACTION [None]
  - FALL [None]
  - RENAL IMPAIRMENT [None]
  - RHABDOMYOLYSIS [None]
